FAERS Safety Report 8778344 (Version 2)
Quarter: 2012Q4

REPORT INFORMATION
  Report Type: 
  Country: US (occurrence: US)
  Receive Date: 20120912
  Receipt Date: 20121008
  Transmission Date: 20130627
  Serious: No
  Sender: FDA-Public Use
  Company Number: US-ASTRAZENECA-2012SE70855

PATIENT
  Sex: Female

DRUGS (2)
  1. ZOMIG [Suspect]
     Dosage: 5 MG TABLET ONCE EVERY 2 HOURS AS NEEDED MAXIMUM 2 TABLETS IN 24 HOURS
     Route: 048
  2. ZOMIG [Suspect]
     Route: 048

REACTIONS (4)
  - Drug intolerance [Unknown]
  - Oesophageal pain [Unknown]
  - Abdominal discomfort [Unknown]
  - Vomiting [Unknown]
